FAERS Safety Report 21634634 (Version 1)
Quarter: 2022Q4

REPORT INFORMATION
  Report Type: Spontaneous
  Country: US (occurrence: US)
  Receive Date: 20221123
  Receipt Date: 20221123
  Transmission Date: 20230113
  Serious: No
  Sender: FDA-Public Use
  Company Number: US-ALMIRALL, LLC-2022AQU000067

PATIENT

DRUGS (2)
  1. SEYSARA [Suspect]
     Active Substance: SARECYCLINE HYDROCHLORIDE
     Indication: Rosacea
     Dosage: 60 MG, QD
     Route: 048
     Dates: start: 20220208
  2. RUXOLITINIB [Concomitant]
     Active Substance: RUXOLITINIB
     Indication: Rosacea
     Dosage: UNK
     Route: 061

REACTIONS (2)
  - Nausea [Recovered/Resolved]
  - Off label use [Unknown]

NARRATIVE: CASE EVENT DATE: 20220210
